FAERS Safety Report 8999394 (Version 2)
Quarter: 2013Q1

REPORT INFORMATION
  Report Type: Spontaneous
  Country: US (occurrence: US)
  Receive Date: 20130103
  Receipt Date: 20130221
  Transmission Date: 20140127
  Serious: No
  Sender: FDA-Public Use
  Company Number: US-BRISTOL-MYERS SQUIBB COMPANY-17145491

PATIENT
  Age: 66 Year
  Sex: Male

DRUGS (1)
  1. YERVOY [Suspect]
     Dosage: 3 DOSES

REACTIONS (2)
  - Diarrhoea [Recovering/Resolving]
  - Bone pain [Not Recovered/Not Resolved]
